FAERS Safety Report 15329724 (Version 1)
Quarter: 2018Q3

REPORT INFORMATION
  Report Type: Spontaneous
  Country: US (occurrence: US)
  Receive Date: 20180823
  Receipt Date: 20180823
  Transmission Date: 20181010
  Serious: Yes (Other)
  Sender: FDA-Public Use
  Company Number: None

PATIENT
  Age: 23 Year
  Sex: Female
  Weight: 52.65 kg

DRUGS (6)
  1. BIOTIN [Concomitant]
     Active Substance: BIOTIN
  2. NORETHINDRONE. [Concomitant]
     Active Substance: NORETHINDRONE
  3. FLUOXETINE [Concomitant]
     Active Substance: FLUOXETINE HYDROCHLORIDE
  4. NORTRIPTYLIN [Concomitant]
     Active Substance: NORTRIPTYLINE
  5. NORTRIPTYLIN [Suspect]
     Active Substance: NORTRIPTYLINE
     Indication: MIGRAINE
     Dosage: ?          QUANTITY:1 CAPSULE(S);?
     Route: 048
     Dates: start: 20180715
  6. VITAFUSION WOMENS SUPERCHARGED MULTI [Concomitant]

REACTIONS (4)
  - Loss of personal independence in daily activities [None]
  - Confusional state [None]
  - Loss of consciousness [None]
  - Disorientation [None]

NARRATIVE: CASE EVENT DATE: 20180801
